FAERS Safety Report 8043582-3 (Version None)
Quarter: 2012Q1

REPORT INFORMATION
  Report Type: 
  Country: None (occurrence: None)
  Receive Date: 20120112
  Receipt Date: 20120103
  Transmission Date: 20120608
  Serious: Yes (Other)
  Sender: FDA-Public Use
  Company Number: US-ASTRAZENECA-2011SE73812

PATIENT
  Age: 37 Year
  Sex: Female
  Weight: 107 kg

DRUGS (4)
  1. SYMBICORT [Suspect]
     Route: 055
  2. PREDNISONE TAB [Concomitant]
     Indication: NEUROSURGERY
  3. PREDNISONE TAB [Concomitant]
     Indication: ASTHMA
  4. PREGNASONE [Concomitant]

REACTIONS (4)
  - BONE DENSITY DECREASED [None]
  - OSTEOPENIA [None]
  - WEIGHT DECREASED [None]
  - LOWER LIMB FRACTURE [None]
